FAERS Safety Report 5874893-5 (Version None)
Quarter: 2008Q3

REPORT INFORMATION
  Report Type: 
  Country: None (occurrence: None)
  Receive Date: 20080904
  Receipt Date: 20080825
  Transmission Date: 20090109
  Serious: Yes (Hospitalization)
  Sender: FDA-Public Use
  Company Number: 2008-181780-NL

PATIENT
  Age: 50 Year
  Sex: Female

DRUGS (2)
  1. ETONOGESTREL [Suspect]
     Dosage: DF SUBCUTANEOUS
     Route: 058
     Dates: start: 20050526, end: 20080801
  2. ETONOGESTREL [Suspect]
     Dosage: DF SUBCUTANEOUS
     Route: 058

REACTIONS (2)
  - BREAST NEOPLASM [None]
  - CONTRACEPTIVE DEVICE COMPLICATION [None]
